FAERS Safety Report 24849193 (Version 1)
Quarter: 2025Q1

REPORT INFORMATION
  Report Type: Spontaneous
  Country: PL (occurrence: PL)
  Receive Date: 20250116
  Receipt Date: 20250116
  Transmission Date: 20250408
  Serious: Yes (Other)
  Sender: REGENERON
  Company Number: PL-BAYER-2025A003716

PATIENT
  Age: 72 Year
  Sex: Male

DRUGS (2)
  1. EYLEA [Suspect]
     Active Substance: AFLIBERCEPT
     Indication: Neovascular age-related macular degeneration
     Route: 031
     Dates: start: 201701, end: 202003
  2. VEGF/VEGFR (VASCULAR ENDOTHELIAL GROWTH FACTOR) INHIBITORS [Concomitant]
     Indication: Age-related macular degeneration

REACTIONS (2)
  - Macular hole [Recovered/Resolved]
  - Visual acuity reduced [Recovering/Resolving]
